FAERS Safety Report 8943954 (Version 1)
Quarter: 2012Q4

REPORT INFORMATION
  Report Type: 
  Country: JP (occurrence: JP)
  Receive Date: 20121204
  Receipt Date: 20121204
  Transmission Date: 20130627
  Serious: Yes (Hospitalization)
  Sender: FDA-Public Use
  Company Number: JP-PFIZER INC-2012287932

PATIENT
  Age: 89 Year
  Sex: Female
  Weight: 35 kg

DRUGS (4)
  1. RIFAMPICIN [Suspect]
     Indication: TUBERCULOUS PERITONITIS
     Dosage: 450 mg, UNK
     Route: 048
  2. ISONIAZID [Suspect]
     Indication: TUBERCULOUS PERITONITIS
     Dosage: 300 mg, UNK
     Route: 048
  3. ETHAMBUTOL [Suspect]
     Indication: TUBERCULOUS PERITONITIS
     Dosage: 750 mg, UNK
     Route: 048
  4. STREPTOMYCIN [Suspect]
     Indication: TUBERCULOUS PERITONITIS

REACTIONS (4)
  - Drug-induced liver injury [Recovered/Resolved]
  - Intestinal obstruction [Recovered/Resolved]
  - Hyponatraemia [Recovered/Resolved]
  - Peritoneal tuberculosis [None]
